FAERS Safety Report 9195839 (Version 1)
Quarter: 2013Q1

REPORT INFORMATION
  Report Type: Spontaneous
  Country: US (occurrence: None)
  Receive Date: 20130312
  Receipt Date: 20130312
  Transmission Date: 20140127
  Serious: No
  Sender: FDA-Public Use
  Company Number: 2013PROUSA02615

PATIENT
  Age: 79 Year
  Sex: Male

DRUGS (1)
  1. PROVENGE [Suspect]
     Indication: PROSTATE CANCER METASTATIC
     Dosage: 250ML,SINGLE,INTRAVENOUS
     Route: 042
     Dates: start: 20130201, end: 20130201

REACTIONS (1)
  - Renal failure acute [None]
